FAERS Safety Report 10297509 (Version 1)
Quarter: 2014Q3

REPORT INFORMATION
  Report Type: Spontaneous
  Country: GB (occurrence: GB)
  Receive Date: 20140711
  Receipt Date: 20140711
  Transmission Date: 20150326
  Serious: Yes (Other)
  Sender: FDA-Public Use
  Company Number: GB-JNJFOC-20140619315

PATIENT
  Age: 73 Year
  Sex: Male

DRUGS (5)
  1. MOXONIDINE [Suspect]
     Active Substance: MOXONIDINE
     Indication: PRODUCT USED FOR UNKNOWN INDICATION
     Route: 065
  2. PIROXICAM. [Suspect]
     Active Substance: PIROXICAM
     Indication: PRODUCT USED FOR UNKNOWN INDICATION
     Route: 065
     Dates: start: 20140411
  3. DIAZEPAM. [Suspect]
     Active Substance: DIAZEPAM
     Indication: MUSCLE SPASMS
     Dosage: DOSAGE: 5.0??CUMULATIVE DOSE OF FIRST REACTION: 10.0
     Route: 065
     Dates: start: 20140411
  4. COCODAMOL [Suspect]
     Active Substance: ACETAMINOPHEN\CODEINE PHOSPHATE
     Indication: MUSCLE SPASMS
     Dosage: DOSAGE: 30/500 MG
     Route: 048
     Dates: start: 20140411
  5. PANADEINE CO [Suspect]
     Active Substance: ACETAMINOPHEN\CODEINE PHOSPHATE
     Indication: PRODUCT USED FOR UNKNOWN INDICATION
     Route: 065

REACTIONS (1)
  - Syncope [Unknown]

NARRATIVE: CASE EVENT DATE: 20140411
